FAERS Safety Report 15090776 (Version 1)
Quarter: 2018Q2

REPORT INFORMATION
  Report Type: Spontaneous
  Country: GB (occurrence: GB)
  Receive Date: 20180629
  Receipt Date: 20180629
  Transmission Date: 20180711
  Serious: Yes (Other)
  Sender: FDA-Public Use
  Company Number: GB-ASTRAZENECA-2018SE81647

PATIENT
  Age: 72 Year
  Sex: Male
  Weight: 100 kg

DRUGS (13)
  1. AMLODIPINE [Concomitant]
     Active Substance: AMLODIPINE BESYLATE
     Dosage: 10.0MG UNKNOWN
  2. OMEPRAZOLE. [Concomitant]
     Active Substance: OMEPRAZOLE
     Dosage: 20.0MG UNKNOWN
  3. ALLOPURINOL. [Concomitant]
     Active Substance: ALLOPURINOL
     Dosage: 300.0MG UNKNOWN
  4. FINASTERIDE. [Concomitant]
     Active Substance: FINASTERIDE
     Dosage: 5.0MG UNKNOWN
  5. TICAGRELOR. [Suspect]
     Active Substance: TICAGRELOR
     Route: 048
     Dates: start: 20170717
  6. FERROUS FUMARATE [Concomitant]
     Active Substance: FERROUS FUMARATE
  7. METFORMIN HYDROCHLORIDE. [Concomitant]
     Active Substance: METFORMIN HYDROCHLORIDE
     Dosage: 500.0MG UNKNOWN
  8. BISOPROLOL FUMARATE. [Concomitant]
     Active Substance: BISOPROLOL FUMARATE
  9. ACETYLSALICYLIC ACID [Concomitant]
     Active Substance: ASPIRIN
     Dosage: 75.0MG UNKNOWN
  10. LOSARTAN POTASSIUM. [Concomitant]
     Active Substance: LOSARTAN POTASSIUM
     Dosage: 100.0MG UNKNOWN
  11. INEGY [Concomitant]
     Active Substance: EZETIMIBE\SIMVASTATIN
     Dosage: SIMVASTATIN 20 MG + EZETIMIBE 10 MG
  12. FUROSEMIDE. [Concomitant]
     Active Substance: FUROSEMIDE
     Dosage: 40.0MG UNKNOWN
  13. CETIRIZINE HYDROCHLORIDE. [Concomitant]
     Active Substance: CETIRIZINE HYDROCHLORIDE
     Dosage: 10.0MG UNKNOWN

REACTIONS (3)
  - Hypotension [Not Recovered/Not Resolved]
  - Loss of consciousness [Recovered/Resolved]
  - Dizziness exertional [Not Recovered/Not Resolved]

NARRATIVE: CASE EVENT DATE: 20170730
